FAERS Safety Report 10265625 (Version 2)
Quarter: 2014Q4

REPORT INFORMATION
  Report Type: Report from Study
  Country: FR (occurrence: FR)
  Receive Date: 20140627
  Receipt Date: 20141212
  Transmission Date: 20150528
  Serious: Yes (Death)
  Sender: FDA-Public Use
  Company Number: FR-ACTELION-A-CH2014-100925

PATIENT
  Age: 69 Year
  Sex: Female

DRUGS (1)
  1. TRACLEER [Suspect]
     Active Substance: BOSENTAN\BOSENTAN MONOHYDRATE
     Indication: SCLERODERMA ASSOCIATED DIGITAL ULCER
     Route: 048

REACTIONS (1)
  - Death [Fatal]
